FAERS Safety Report 6742372-9 (Version None)
Quarter: 2010Q2

REPORT INFORMATION
  Report Type: 
  Country: None (occurrence: None)
  Receive Date: 20100526
  Receipt Date: 20100413
  Transmission Date: 20101027
  Serious: Yes (Life-Threatening, Hospitalization, Other)
  Sender: FDA-Public Use
  Company Number: GB-SANOFI-AVENTIS-2010SA029545

PATIENT
  Sex: Female

DRUGS (3)
  1. DOCETAXEL [Suspect]
     Route: 041
     Dates: start: 20100322, end: 20100322
  2. DEXAMETHASONE [Concomitant]
     Route: 042
     Dates: start: 20100322, end: 20100322
  3. RANITIDINE [Concomitant]
     Route: 042
     Dates: start: 20100322, end: 20100322

REACTIONS (1)
  - CARDIAC ARREST [None]
